FAERS Safety Report 7043427 (Version 17)
Quarter: 2018Q3

REPORT INFORMATION
  Report Type: Report from Study
  Country: JP (occurrence: JP)
  Receive Date: 20090707
  Receipt Date: 20180731
  Transmission Date: 20181010
  Serious: Yes (Hospitalization)
  Sender: FDA-Public Use
  Company Number: JP-ROCHE-642268

PATIENT
  Age: 83 Year
  Sex: Male

DRUGS (4)
  1. BEVACIZUMAB. [Suspect]
     Active Substance: BEVACIZUMAB
     Dosage: 1.25 MG, UNK
     Route: 031
  2. BEVACIZUMAB. [Suspect]
     Active Substance: BEVACIZUMAB
     Indication: AGE-RELATED MACULAR DEGENERATION
     Dosage: UNK
     Route: 031
  3. RANIBIZUMAB. [Suspect]
     Active Substance: RANIBIZUMAB
     Indication: AGE-RELATED MACULAR DEGENERATION
     Dosage: 0.05 ML, UNK
     Route: 031
  4. TRIAMCINOLONE ACETONIDE. [Suspect]
     Active Substance: TRIAMCINOLONE ACETONIDE
     Indication: AGE-RELATED MACULAR DEGENERATION
     Dosage: UNK
     Route: 050

REACTIONS (7)
  - Eye inflammation [Unknown]
  - Retinal disorder [Unknown]
  - Cytomegalovirus chorioretinitis [Recovered/Resolved]
  - Necrosis [Unknown]
  - Vasculitis [Unknown]
  - Vitrectomy [Unknown]
  - Eye disorder [Unknown]

NARRATIVE: CASE EVENT DATE: 20090523
